FAERS Safety Report 6858351-7 (Version None)
Quarter: 2010Q3

REPORT INFORMATION
  Report Type: 
  Country: None (occurrence: None)
  Receive Date: 20100719
  Receipt Date: 20080206
  Transmission Date: 20110219
  Serious: No
  Sender: FDA-Public Use
  Company Number: US-PFIZER INC-2008013736

PATIENT
  Sex: Female
  Weight: 111.36 kg

DRUGS (7)
  1. CHANTIX [Suspect]
     Indication: SMOKING CESSATION THERAPY
  2. LAMICTAL [Concomitant]
  3. TOPAMAX [Concomitant]
     Indication: BIPOLAR DISORDER
  4. ALTACE [Concomitant]
  5. MOTRIN [Concomitant]
  6. ACETYLSALICYLIC ACID [Concomitant]
  7. FENTANYL [Concomitant]

REACTIONS (4)
  - ANXIETY [None]
  - CONSTIPATION [None]
  - IRRITABILITY [None]
  - PANIC REACTION [None]
